FAERS Safety Report 8923123 (Version 1)
Quarter: 2012Q4

REPORT INFORMATION
  Report Type: Spontaneous
  Country: US (occurrence: None)
  Receive Date: 20121115
  Receipt Date: 20121115
  Transmission Date: 20130627
  Serious: Yes (Other)
  Sender: FDA-Public Use
  Company Number: DSA_60908_2012

PATIENT
  Sex: Female

DRUGS (2)
  1. WELLBUTRIN [Suspect]
     Indication: PRODUCT USED FOR UNKNOWN INDICATION
     Route: 048
     Dates: start: 2007
  2. XANAX [Suspect]
     Indication: PANIC ATTACK
     Route: 048
     Dates: start: 2003

REACTIONS (18)
  - Hallucination, visual [None]
  - Nervousness [None]
  - Nausea [None]
  - Psychomotor hyperactivity [None]
  - Malaise [None]
  - Blood pressure increased [None]
  - Tremor [None]
  - Tremor [None]
  - Hyperhidrosis [None]
  - Pain [None]
  - Disturbance in attention [None]
  - Weight decreased [None]
  - Insomnia [None]
  - Gait disturbance [None]
  - Pain [None]
  - Gastric haemorrhage [None]
  - Hernia [None]
  - Dyspepsia [None]
